FAERS Safety Report 9107510 (Version 2)
Quarter: 2013Q1

REPORT INFORMATION
  Report Type: Spontaneous
  Country: US (occurrence: US)
  Receive Date: 20130221
  Receipt Date: 20130228
  Transmission Date: 20140127
  Serious: Yes (Other)
  Sender: FDA-Public Use
  Company Number: US-PFIZER INC-2013030760

PATIENT
  Sex: Female

DRUGS (6)
  1. LYRICA [Suspect]
     Indication: TRIGEMINAL NEURALGIA
     Dosage: UNK
  2. LYRICA [Suspect]
     Indication: FIBROMYALGIA
  3. LYRICA [Suspect]
     Indication: NEUROPATHY PERIPHERAL
  4. PRAVASTATIN [Concomitant]
     Indication: BLOOD CHOLESTEROL ABNORMAL
  5. METOPROLOL [Concomitant]
     Indication: BLOOD PRESSURE ABNORMAL
  6. LISINOPRIL [Concomitant]
     Indication: BLOOD PRESSURE ABNORMAL

REACTIONS (6)
  - Retinoschisis [Unknown]
  - Retinal detachment [Unknown]
  - Circumstance or information capable of leading to medication error [Unknown]
  - Vision blurred [Not Recovered/Not Resolved]
  - Drug effect incomplete [Unknown]
  - Dry mouth [Unknown]
